FAERS Safety Report 6457324-6 (Version None)
Quarter: 2009Q4

REPORT INFORMATION
  Report Type: 
  Country: None (occurrence: None)
  Receive Date: 20091125
  Receipt Date: 20091119
  Transmission Date: 20100525
  Serious: Yes (Death, Hospitalization)
  Sender: FDA-Public Use
  Company Number: NL-CELGENEUS-114-50794-09091284

PATIENT
  Sex: Male

DRUGS (2)
  1. VIDAZA [Suspect]
     Route: 058
     Dates: start: 20090803, end: 20090806
  2. MOVICOLON [Concomitant]
     Indication: CONSTIPATION
     Route: 065

REACTIONS (4)
  - ABDOMINAL PAIN [None]
  - ANAL FISSURE [None]
  - CONSTIPATION [None]
  - GENERAL PHYSICAL HEALTH DETERIORATION [None]
